FAERS Safety Report 4998856-7 (Version None)
Quarter: 2006Q2

REPORT INFORMATION
  Report Type: 
  Country: None (occurrence: None)
  Receive Date: 20060509
  Receipt Date: 20060428
  Transmission Date: 20061013
  Serious: Yes (Hospitalization, Other)
  Sender: FDA-Public Use
  Company Number: 2005130010

PATIENT
  Age: 79 Year
  Sex: Male
  Weight: 96.1626 kg

DRUGS (2)
  1. BEXTRA [Suspect]
     Indication: BACK PAIN
     Dosage: 10 MG (10 MG, 1 IN 1 D),
     Dates: start: 20020901, end: 20040201
  2. BEXTRA [Suspect]
     Indication: PAIN IN EXTREMITY
     Dosage: 10 MG (10 MG, 1 IN 1 D),
     Dates: start: 20020901, end: 20040201

REACTIONS (1)
  - CEREBROVASCULAR ACCIDENT [None]
